FAERS Safety Report 9550924 (Version 1)
Quarter: 2013Q3

REPORT INFORMATION
  Report Type: Spontaneous
  Country: US (occurrence: US)
  Receive Date: 20130924
  Receipt Date: 20130924
  Transmission Date: 20140515
  Serious: No
  Sender: FDA-Public Use
  Company Number: US-SANOFI-AVENTIS-2013SA041696

PATIENT
  Age: 45 Year
  Sex: Female

DRUGS (2)
  1. AUBAGIO [Suspect]
     Indication: MULTIPLE SCLEROSIS
     Dosage: PRODUCT START DATE - 12/1
     Route: 048
  2. PEPTO-BISMOL [Concomitant]

REACTIONS (6)
  - Balance disorder [Unknown]
  - Feeling drunk [Unknown]
  - Back pain [Unknown]
  - Diarrhoea [Unknown]
  - Diarrhoea [Unknown]
  - Alopecia [Unknown]
